FAERS Safety Report 8814283 (Version 1)
Quarter: 2012Q4

REPORT INFORMATION
  Report Type: Spontaneous
  Country: GB (occurrence: None)
  Receive Date: 20120925
  Receipt Date: 20120925
  Transmission Date: 20130627
  Serious: Yes (Other)
  Sender: FDA-Public Use
  Company Number: AUR-APL-2012-04086

PATIENT
  Age: 33 Year
  Sex: Male
  Weight: 87 kg

DRUGS (1)
  1. CITALOPRAM (CITALOPRAM) [Suspect]
     Indication: ANXIETY
     Dates: start: 201208

REACTIONS (7)
  - Abdominal discomfort [None]
  - Feeling abnormal [None]
  - Anxiety [None]
  - Hyperhidrosis [None]
  - Nausea [None]
  - Drug withdrawal syndrome [None]
  - Flatulence [None]
